FAERS Safety Report 6574575-0 (Version None)
Quarter: 2010Q1

REPORT INFORMATION
  Report Type: 
  Country: None (occurrence: None)
  Receive Date: 20100209
  Receipt Date: 20100202
  Transmission Date: 20100710
  Serious: Yes (Hospitalization)
  Sender: FDA-Public Use
  Company Number: DE-TEVA-183643ISR

PATIENT
  Age: 70 Year
  Sex: Male
  Weight: 91.5 kg

DRUGS (16)
  1. CARVEDILOL [Suspect]
     Indication: HYPERTENSION
     Route: 048
  2. DIGITOXIN [Interacting]
     Indication: CARDIAC FAILURE
     Route: 048
     Dates: start: 20080625, end: 20080720
  3. ACETOLYT [Concomitant]
     Indication: ACIDOSIS
     Route: 048
     Dates: end: 20080720
  4. ALLOPURINOL [Concomitant]
     Indication: HYPERURICAEMIA
     Route: 048
  5. ACETYLSALICYLIC ACID [Concomitant]
     Indication: PROPHYLAXIS
     Route: 048
     Dates: start: 20000101
  6. VALSARTAN [Concomitant]
     Indication: HYPERTENSION
     Route: 048
  7. URAPIDIL [Concomitant]
     Indication: HYPERTENSION
     Route: 048
  8. ALFACALCIDOL [Concomitant]
     Indication: HYPERPARATHYROIDISM
     Route: 048
     Dates: start: 20080520
  9. FLUVASTATIN SODIUM [Concomitant]
     Indication: HYPERCHOLESTEROLAEMIA
     Route: 048
  10. PANTOPRAZOLE SODIUM [Concomitant]
     Indication: HELICOBACTER GASTRITIS
     Route: 048
  11. CLOPIDOGREL [Concomitant]
     Indication: PROPHYLAXIS
     Route: 048
     Dates: start: 20060401, end: 20080720
  12. TORSEMIDE [Concomitant]
     Indication: HYPERTENSION
     Route: 048
  13. XIPAMIDE [Concomitant]
     Indication: HYPERTENSION
     Route: 048
     Dates: start: 20080625
  14. MOXONIDINE [Concomitant]
     Indication: HYPERTENSION
     Route: 048
  15. EPOETIN BETA [Concomitant]
     Indication: ANAEMIA
     Route: 058
  16. DIPYRONE TAB [Concomitant]
     Indication: OSTEOARTHRITIS
     Route: 048
     Dates: start: 19900101

REACTIONS (6)
  - ANAEMIA [None]
  - DRUG INTERACTION [None]
  - GENERAL PHYSICAL HEALTH DETERIORATION [None]
  - MALAISE [None]
  - NAUSEA [None]
  - URINARY RETENTION [None]
